FAERS Safety Report 18971587 (Version 3)
Quarter: 2021Q2

REPORT INFORMATION
  Report Type: Report from Study
  Country: None (occurrence: US)
  Receive Date: 20210305
  Receipt Date: 20210401
  Transmission Date: 20210717
  Serious: Yes (Other)
  Sender: FDA-Public Use
  Company Number: US-ABBVIE-21K-163-3800145-00

PATIENT
  Age: 69 Year
  Sex: Female

DRUGS (3)
  1. DUOPA [Suspect]
     Active Substance: CARBIDOPA\LEVODOPA
     Indication: PRODUCT USED FOR UNKNOWN INDICATION
     Route: 050
     Dates: start: 20210216
  2. BOTOX [Concomitant]
     Active Substance: ONABOTULINUMTOXINA
     Indication: PAIN IN EXTREMITY
  3. DUOPA [Suspect]
     Active Substance: CARBIDOPA\LEVODOPA

REACTIONS (12)
  - Vomiting [Recovered/Resolved]
  - Chest pain [Recovered/Resolved]
  - Oropharyngeal discomfort [Recovering/Resolving]
  - Neck pain [Unknown]
  - Vocal cord disorder [Unknown]
  - Device alarm issue [Recovered/Resolved]
  - Chest pain [Not Recovered/Not Resolved]
  - Anxiety [Recovering/Resolving]
  - Device occlusion [Recovered/Resolved]
  - Dyspnoea [Not Recovered/Not Resolved]
  - Oesophageal motility disorder [Unknown]
  - Pain [Unknown]

NARRATIVE: CASE EVENT DATE: 202102
